FAERS Safety Report 22023667 (Version 16)
Quarter: 2024Q1

REPORT INFORMATION
  Report Type: Other
  Country: CA (occurrence: None)
  Receive Date: 20230223
  Receipt Date: 20240328
  Transmission Date: 20240410
  Serious: Yes (Hospitalization, Other)
  Sender: FDA-Public Use
  Company Number: CA-ROCHE-2381919

PATIENT
  Age: 65 Year
  Sex: Female
  Weight: 62 kg

DRUGS (9)
  1. AVASTIN [Suspect]
     Active Substance: BEVACIZUMAB
     Indication: Non-small cell lung cancer
     Route: 042
     Dates: start: 20190802, end: 20191025
  2. AVASTIN [Suspect]
     Active Substance: BEVACIZUMAB
     Route: 042
     Dates: start: 20191115, end: 20200731
  3. AVASTIN [Suspect]
     Active Substance: BEVACIZUMAB
     Route: 042
     Dates: start: 20200825, end: 202112
  4. AVASTIN [Suspect]
     Active Substance: BEVACIZUMAB
     Route: 042
     Dates: start: 20211223, end: 20221215
  5. AVASTIN [Suspect]
     Active Substance: BEVACIZUMAB
     Route: 042
     Dates: start: 20230105, end: 20231207
  6. AVASTIN [Suspect]
     Active Substance: BEVACIZUMAB
     Route: 042
     Dates: start: 20231228
  7. FOLIC ACID [Concomitant]
     Active Substance: FOLIC ACID
     Route: 048
  8. HYDROCHLOROTHIAZIDE [Concomitant]
     Active Substance: HYDROCHLOROTHIAZIDE
     Indication: Hypertension
     Route: 048
     Dates: start: 20200110
  9. METOCLOPRAMIDE [Concomitant]
     Active Substance: METOCLOPRAMIDE

REACTIONS (18)
  - COVID-19 [Unknown]
  - Supraventricular tachycardia [Unknown]
  - Hypertension [Unknown]
  - Blood pressure fluctuation [Unknown]
  - Weight increased [Unknown]
  - Blood pressure increased [Unknown]
  - Blood pressure systolic increased [Unknown]
  - Blood pressure diastolic abnormal [Unknown]
  - Oxygen saturation decreased [Unknown]
  - Blood pressure diastolic increased [Unknown]
  - Tooth disorder [Unknown]
  - Heart rate increased [Unknown]
  - Respiratory rate increased [Unknown]
  - Dyspnoea [Unknown]
  - Pleural effusion [Unknown]
  - Weight decreased [Unknown]
  - Blood pressure systolic abnormal [Unknown]
  - Decreased appetite [Not Recovered/Not Resolved]

NARRATIVE: CASE EVENT DATE: 20190802
